FAERS Safety Report 5897422-9 (Version None)
Quarter: 2008Q3

REPORT INFORMATION
  Report Type: 
  Country: None (occurrence: None)
  Receive Date: 20080915
  Receipt Date: 20071016
  Transmission Date: 20090109
  Serious: Yes (Other)
  Sender: FDA-Public Use
  Company Number: PHEH2007US13429

PATIENT
  Sex: Female

DRUGS (1)
  1. ZELNORM [Suspect]
     Dates: start: 20060801, end: 20070301

REACTIONS (3)
  - CARDIOVASCULAR DISORDER [None]
  - CHEST PAIN [None]
  - FATIGUE [None]
